FAERS Safety Report 4853628-9 (Version None)
Quarter: 2005Q4

REPORT INFORMATION
  Report Type: 
  Country: None (occurrence: None)
  Receive Date: 20051214
  Receipt Date: 20051206
  Transmission Date: 20060501
  Serious: Yes (Disabling)
  Sender: FDA-Public Use
  Company Number: 2005CG02012

PATIENT
  Age: 72 Year
  Sex: Male

DRUGS (5)
  1. ZOLADEX [Suspect]
     Indication: PROSTATE CANCER
     Route: 058
     Dates: start: 20040801
  2. ANDROCUR [Suspect]
     Indication: PROSTATE CANCER
     Route: 048
     Dates: start: 20040601, end: 20040101
  3. ANDROCUR [Concomitant]
     Indication: POSTOPERATIVE CARE
     Dates: start: 20040601, end: 20040101
  4. RADIOTHERAPY [Concomitant]
     Indication: POSTOPERATIVE CARE
     Dosage: 66 GRAYS
     Dates: start: 20041001, end: 20041101
  5. TITANOREINE [Concomitant]
     Indication: PROCTITIS

REACTIONS (5)
  - ARTHRALGIA [None]
  - OEDEMA PERIPHERAL [None]
  - OSTEONECROSIS [None]
  - PARAESTHESIA [None]
  - PRURITUS [None]
